FAERS Safety Report 7158932-X (Version None)
Quarter: 2010Q4

REPORT INFORMATION
  Report Type: 
  Country: None (occurrence: None)
  Receive Date: 20101214
  Receipt Date: 20101206
  Transmission Date: 20110411
  Serious: Yes (Life-Threatening, Other)
  Sender: FDA-Public Use
  Company Number: NZ-SANOFI-AVENTIS-2010SA067478

PATIENT
  Sex: Male
  Weight: 93 kg

DRUGS (1)
  1. LANTUS [Suspect]
     Dates: start: 20080101

REACTIONS (2)
  - DEEP VEIN THROMBOSIS [None]
  - THROMBOPHLEBITIS SUPERFICIAL [None]
